FAERS Safety Report 8618003-X (Version None)
Quarter: 2012Q3

REPORT INFORMATION
  Report Type: 
  Country: None (occurrence: None)
  Receive Date: 20120824
  Receipt Date: 20120301
  Transmission Date: 20120928
  Serious: No
  Sender: FDA-Public Use
  Company Number: US-ASTRAZENECA-2012SE06164

PATIENT
  Sex: Female

DRUGS (3)
  1. SYMBICORT [Suspect]
     Indication: CHRONIC OBSTRUCTIVE PULMONARY DISEASE
     Dosage: 80/4.5 MCG, TWO PUFFS, TWICE A DAY
     Route: 055
  2. SYMBICORT [Suspect]
     Dosage: 80/4.5 MCG, TWO PUFFS, AS REQUIRED
     Route: 055
  3. OTHER MEDICATIONS [Concomitant]

REACTIONS (2)
  - OFF LABEL USE [None]
  - RESPIRATORY TRACT CONGESTION [None]
